FAERS Safety Report 6402531-1 (Version None)
Quarter: 2009Q4

REPORT INFORMATION
  Report Type: 
  Country: None (occurrence: None)
  Receive Date: 20091009
  Receipt Date: 20090930
  Transmission Date: 20100525
  Serious: Yes (Hospitalization, Other)
  Sender: FDA-Public Use
  Company Number: ADR34572009

PATIENT
  Age: 54 Year
  Sex: Male

DRUGS (6)
  1. CIPROFLOXACIN [Suspect]
     Indication: URINARY TRACT INFECTION
     Dosage: 1 G, ORAL
     Route: 048
     Dates: start: 20090106, end: 20090118
  2. VIRAMUNE [Concomitant]
  3. CEPHRADINE [Concomitant]
  4. CO-TRIMOXAZOLE (SULPHAMETHOXASOLE, TRIMETHOPRIM) [Concomitant]
  5. TETRACYCLINE [Concomitant]
  6. TRUVADA [Concomitant]

REACTIONS (7)
  - ASPARTATE AMINOTRANSFERASE INCREASED [None]
  - BLOOD ALKALINE PHOSPHATASE INCREASED [None]
  - BLOOD BILIRUBIN INCREASED [None]
  - JAUNDICE [None]
  - NEUTROPENIA [None]
  - THROMBOCYTOPENIA [None]
  - WHITE BLOOD CELL COUNT DECREASED [None]
